FAERS Safety Report 14999689 (Version 1)
Quarter: 2018Q2

REPORT INFORMATION
  Report Type: Spontaneous
  Country: GB (occurrence: GB)
  Receive Date: 20180612
  Receipt Date: 20180612
  Transmission Date: 20180711
  Serious: Yes (Hospitalization)
  Sender: FDA-Public Use
  Company Number: GB-TAIHO ONCOLOGY INC-JPTT180466

PATIENT
  Age: 69 Year
  Sex: Female

DRUGS (1)
  1. LONSURF [Suspect]
     Active Substance: TIPIRACIL HYDROCHLORIDE\TRIFLURIDINE
     Indication: COLORECTAL CANCER METASTATIC
     Dosage: 55 MG (35 MG/M2) BID, ON DAYS 1-5 AND 8-12 OF EACH 28 DAYS CYCLE)
     Route: 048
     Dates: start: 20180110, end: 201802

REACTIONS (4)
  - Abdominal pain [Unknown]
  - Fatigue [Unknown]
  - Malignant neoplasm progression [Unknown]
  - Insomnia [Unknown]

NARRATIVE: CASE EVENT DATE: 20180207
